FAERS Safety Report 13323713 (Version 3)
Quarter: 2018Q2

REPORT INFORMATION
  Report Type: Spontaneous
  Country: US (occurrence: US)
  Receive Date: 20170310
  Receipt Date: 20180508
  Transmission Date: 20180711
  Serious: Yes (Other)
  Sender: FDA-Public Use
  Company Number: US-PFIZER INC-2017102166

PATIENT
  Age: 85 Year
  Sex: Female

DRUGS (7)
  1. IBRANCE [Suspect]
     Active Substance: PALBOCICLIB
     Indication: BREAST CANCER STAGE IV
     Dosage: 100 MG, CYCLIC ( ONCE A DAY, 3 WEEKS + OFF 1 WEEK)
     Dates: start: 201502
  2. TYLENOL [Concomitant]
     Active Substance: ACETAMINOPHEN
     Indication: SLEEP DISORDER
     Dosage: 650 MG, UNK
  3. COUMADINE [Concomitant]
     Active Substance: WARFARIN SODIUM
     Indication: ANTICOAGULANT THERAPY
     Dosage: 5 MG, 1X/DAY
     Dates: start: 20150708
  4. IBRANCE [Suspect]
     Active Substance: PALBOCICLIB
     Dosage: 100 MG, CYCLIC (DAILY/ 21 DAYS ON AND 7 DAYS OFF)
     Route: 048
     Dates: start: 201604
  5. LETROZOLE. [Concomitant]
     Active Substance: LETROZOLE
     Indication: OESTROGEN THERAPY
     Dosage: 2.5 MG, 1X/DAY
     Dates: start: 201502
  6. VESICARE [Concomitant]
     Active Substance: SOLIFENACIN SUCCINATE
     Indication: HYPERTONIC BLADDER
     Dosage: 5 MG, 1X/DAY
     Dates: start: 201704
  7. IBRANCE [Suspect]
     Active Substance: PALBOCICLIB
     Dosage: 125 MG, CYCLIC (DAILY/ 21 DAYS ON AND 7 DAYS OFF)
     Route: 048
     Dates: start: 201602, end: 201603

REACTIONS (12)
  - Red blood cell count decreased [Unknown]
  - Constipation [Unknown]
  - Chills [Unknown]
  - Fatigue [Unknown]
  - Dementia [Not Recovered/Not Resolved]
  - Neoplasm progression [Unknown]
  - Condition aggravated [Recovering/Resolving]
  - Diarrhoea [Unknown]
  - White blood cell count decreased [Unknown]
  - Oral pain [Unknown]
  - Alopecia [Recovering/Resolving]
  - Memory impairment [Not Recovered/Not Resolved]

NARRATIVE: CASE EVENT DATE: 201502
